FAERS Safety Report 18404288 (Version 2)
Quarter: 2020Q4

REPORT INFORMATION
  Report Type: Spontaneous
  Country: JP (occurrence: JP)
  Receive Date: 20201020
  Receipt Date: 20201030
  Transmission Date: 20210114
  Serious: Yes (Hospitalization)
  Sender: FDA-Public Use
  Company Number: NVSJ2020JP010185

PATIENT
  Age: 69 Year
  Sex: Male

DRUGS (1)
  1. NEORAL [Suspect]
     Active Substance: CYCLOSPORINE
     Indication: NEPHROTIC SYNDROME
     Dosage: UNK
     Route: 048
     Dates: end: 20201005

REACTIONS (3)
  - Pyloric stenosis [Unknown]
  - Fluid retention [Unknown]
  - Gastric cancer [Unknown]

NARRATIVE: CASE EVENT DATE: 20201005
